FAERS Safety Report 7042111-0 (Version None)
Quarter: 2010Q4

REPORT INFORMATION
  Report Type: 
  Country: None (occurrence: None)
  Receive Date: 20101013
  Receipt Date: 20100709
  Transmission Date: 20110411
  Serious: No
  Sender: FDA-Public Use
  Company Number: US-ASTRAZENECA-2010SE32122

PATIENT
  Age: 62 Year
  Sex: Female
  Weight: 104.3 kg

DRUGS (1)
  1. SYMBICORT [Suspect]
     Indication: ASTHMA
     Dosage: 160 UG
     Route: 055
     Dates: start: 20090101

REACTIONS (1)
  - TYPE 2 DIABETES MELLITUS [None]
